FAERS Safety Report 20618729 (Version 3)
Quarter: 2022Q2

REPORT INFORMATION
  Report Type: Spontaneous
  Country: US (occurrence: US)
  Receive Date: 20220322
  Receipt Date: 20220502
  Transmission Date: 20220721
  Serious: No
  Sender: FDA-Public Use
  Company Number: US-AMGEN-USASP2022040830

PATIENT
  Age: 55 Year
  Sex: Female

DRUGS (8)
  1. REPATHA [Suspect]
     Active Substance: EVOLOCUMAB
     Indication: Blood cholesterol increased
     Dosage: 140 MILLIGRAM, Q2WK
     Route: 065
     Dates: start: 2016, end: 202203
  2. REPATHA [Suspect]
     Active Substance: EVOLOCUMAB
     Indication: Hypercholesterolaemia
  3. PROLIA [Suspect]
     Active Substance: DENOSUMAB
     Indication: Osteoporosis
     Dosage: UNK
     Route: 065
  4. ARMOUR THYROID [Concomitant]
     Active Substance: THYROID, PORCINE
     Indication: Thyroid disorder
     Dosage: UNK
  5. IBANDRONATE SODIUM [Concomitant]
     Active Substance: IBANDRONATE SODIUM
     Indication: Arthritis
     Dosage: UNK
  6. IBANDRONATE SODIUM [Concomitant]
     Active Substance: IBANDRONATE SODIUM
     Indication: Osteoporosis
  7. AMITRIPTYLINE [Concomitant]
     Active Substance: AMITRIPTYLINE
  8. IBUPROFEN [Concomitant]
     Active Substance: IBUPROFEN

REACTIONS (14)
  - Dyspnoea [Recovered/Resolved]
  - Rhinorrhoea [Unknown]
  - Irritable bowel syndrome [Recovered/Resolved]
  - Lymphadenopathy [Recovering/Resolving]
  - Weight increased [Unknown]
  - Bladder prolapse [Unknown]
  - Hyponatraemia [Unknown]
  - Fibromyalgia [Recovering/Resolving]
  - Thyroid disorder [Unknown]
  - Pain in jaw [Recovered/Resolved]
  - Food allergy [Unknown]
  - Inflammation [Recovered/Resolved]
  - Urinary tract infection [Recovered/Resolved]
  - Dizziness [Unknown]

NARRATIVE: CASE EVENT DATE: 20160101
